FAERS Safety Report 5762038-1 (Version None)
Quarter: 2008Q2

REPORT INFORMATION
  Report Type: 
  Country: None (occurrence: None)
  Receive Date: 20080603
  Receipt Date: 20080521
  Transmission Date: 20081010
  Serious: Yes (Death)
  Sender: FDA-Public Use
  Company Number: GXKR2008GB04236

PATIENT
  Age: 67 Year
  Sex: Male

DRUGS (8)
  1. WARFARIN SODIUM [Suspect]
     Indication: EMBOLISM
     Dosage: ORAL
     Route: 048
     Dates: start: 19870617
  2. ALLOPURINOL [Concomitant]
  3. AMIODARONE HCL [Concomitant]
  4. CETRABEN EMOLLIENT (LIGHT LIQUID PARAFFIN, WHITE SOFT PARAFFIN) [Concomitant]
  5. DIGOXIN [Concomitant]
  6. FLOMAX [Concomitant]
  7. LERCANIDIPINE [Concomitant]
  8. LISINOPRIL [Concomitant]

REACTIONS (5)
  - BLOOD PRESSURE DIASTOLIC DECREASED [None]
  - CIRCULATORY COLLAPSE [None]
  - HAEMOGLOBIN DECREASED [None]
  - RETROPERITONEAL HAEMATOMA [None]
  - TACHYCARDIA [None]
